FAERS Safety Report 14541684 (Version 2)
Quarter: 2018Q1

REPORT INFORMATION
  Report Type: Spontaneous
  Country: RU (occurrence: RU)
  Receive Date: 20180216
  Receipt Date: 20180301
  Transmission Date: 20180509
  Serious: No
  Sender: FDA-Public Use
  Company Number: RU-ASTRAZENECA-2017SF17292

PATIENT
  Age: 60 Year
  Sex: Male
  Weight: 70 kg

DRUGS (1)
  1. BRILINTA [Suspect]
     Active Substance: TICAGRELOR
     Indication: INTRACRANIAL ANEURYSM
     Route: 048
     Dates: start: 20161126, end: 20171126

REACTIONS (4)
  - Off label use [Recovered/Resolved]
  - Product use issue [Recovered/Resolved]
  - Contusion [Recovered/Resolved]
  - Product use in unapproved indication [Recovered/Resolved]

NARRATIVE: CASE EVENT DATE: 201605
